FAERS Safety Report 22126251 (Version 1)
Quarter: 2023Q1

REPORT INFORMATION
  Report Type: Spontaneous
  Country: US (occurrence: US)
  Receive Date: 20230322
  Receipt Date: 20230322
  Transmission Date: 20230417
  Serious: No
  Sender: FDA-Public Use
  Company Number: US-ALLERGAN-2228700US

PATIENT
  Age: 34 Year
  Sex: Female
  Weight: 47.627 kg

DRUGS (1)
  1. LATISSE [Suspect]
     Active Substance: BIMATOPROST
     Indication: Growth of eyelashes
     Dosage: 1 DROP ON APPLICATOR EACH EYE
     Route: 062
     Dates: start: 202208, end: 202208

REACTIONS (6)
  - Wrong technique in product usage process [Unknown]
  - Lacrimation increased [Not Recovered/Not Resolved]
  - Ocular hyperaemia [Unknown]
  - Erythema of eyelid [Unknown]
  - Hypersensitivity [Recovered/Resolved]
  - Blepharal pigmentation [Recovered/Resolved]

NARRATIVE: CASE EVENT DATE: 20220801
